FAERS Safety Report 19358879 (Version 1)
Quarter: 2021Q2

REPORT INFORMATION
  Report Type: Spontaneous
  Country: US (occurrence: US)
  Receive Date: 20210602
  Receipt Date: 20210602
  Transmission Date: 20210717
  Serious: No
  Sender: FDA-Public Use
  Company Number: None

PATIENT
  Age: 72 Year
  Sex: Male
  Weight: 85.5 kg

DRUGS (2)
  1. LOSARTAN MEDICATION [Suspect]
     Active Substance: LOSARTAN
     Indication: HYPERTENSION
     Dates: start: 20191201, end: 20210602
  2. LATANOPROST OPTHALMIC [Concomitant]
     Active Substance: LATANOPROST

REACTIONS (2)
  - Pain [None]
  - Discomfort [None]

NARRATIVE: CASE EVENT DATE: 20210529
